FAERS Safety Report 6709253-8 (Version None)
Quarter: 2010Q2

REPORT INFORMATION
  Report Type: 
  Country: None (occurrence: None)
  Receive Date: 20100504
  Receipt Date: 20100426
  Transmission Date: 20101027
  Serious: Yes (Hospitalization)
  Sender: FDA-Public Use
  Company Number: US-WYE-H14815710

PATIENT
  Age: 72 Year
  Sex: Male
  Weight: 90.8 kg

DRUGS (4)
  1. IBUPROFEN (ADVIL) [Suspect]
     Indication: ANALGESIC THERAPY
     Dosage: 2 LIQUIGELS EVERY 4 HOURS
     Route: 048
     Dates: start: 20100413, end: 20100414
  2. OXYCODONE [Concomitant]
     Indication: PAIN
     Dosage: 10MG/325 EVERY 4 HOURS
     Route: 048
     Dates: start: 20100404
  3. LASIX [Concomitant]
     Indication: HYPERTENSION
     Route: 048
     Dates: start: 20100201
  4. IMDUR [Concomitant]
     Indication: HYPERTENSION
     Route: 048
     Dates: start: 20091001

REACTIONS (2)
  - CONDITION AGGRAVATED [None]
  - HYPERTENSION [None]
